FAERS Safety Report 8759959 (Version 1)
Quarter: 2012Q4

REPORT INFORMATION
  Report Type: Report from Study
  Country: JP (occurrence: JP)
  Receive Date: 20120829
  Receipt Date: 20120829
  Transmission Date: 20130627
  Serious: Yes (Life-Threatening, Hospitalization)
  Sender: FDA-Public Use
  Company Number: JP-GLAXOSMITHKLINE-B0825052A

PATIENT
  Age: 75 Year
  Sex: Female
  Weight: 67 kg

DRUGS (6)
  1. REVOLADE [Suspect]
     Indication: IDIOPATHIC THROMBOCYTOPENIC PURPURA
     Dosage: 12.5MG Per day
     Route: 048
     Dates: start: 20120118, end: 20120203
  2. BAKTAR [Suspect]
     Indication: PRODUCT USED FOR UNKNOWN INDICATION
     Route: 048
  3. ADALAT-CR [Concomitant]
     Dosage: 20MG Per day
     Route: 048
  4. PREDONINE [Concomitant]
     Dosage: 25MG Per day
     Route: 048
  5. OMEPRAL [Concomitant]
     Dosage: 20MG Per day
     Route: 048
  6. MEVAN [Concomitant]
     Route: 048

REACTIONS (2)
  - Deep vein thrombosis [Recovering/Resolving]
  - White blood cell count decreased [Recovering/Resolving]
